FAERS Safety Report 4266740-2 (Version None)
Quarter: 2004Q1

REPORT INFORMATION
  Report Type: 
  Country: None (occurrence: None)
  Receive Date: 20040108
  Receipt Date: 20031225
  Transmission Date: 20041129
  Serious: Yes (Other)
  Sender: FDA-Public Use
  Company Number: VN-GLAXOSMITHKLINE-B0318768A

PATIENT
  Age: 76 Year
  Sex: Male
  Weight: 60 kg

DRUGS (4)
  1. CEFUROXIME SODIUM [Suspect]
     Indication: PROPHYLAXIS
     Dosage: 1500MG PER DAY
     Route: 042
     Dates: start: 20031224, end: 20031224
  2. ALVERINE CITRATE [Concomitant]
     Dosage: 2TAB PER DAY
     Route: 048
  3. SEDUXEN [Concomitant]
     Dosage: 1TAB PER DAY
     Route: 048
  4. MACROGOL 400 [Concomitant]
     Dosage: 2SAC PER DAY
     Route: 048

REACTIONS (3)
  - DYSPNOEA [None]
  - HYPERSENSITIVITY [None]
  - PRURITUS [None]
